FAERS Safety Report 14978733 (Version 1)
Quarter: 2018Q2

REPORT INFORMATION
  Report Type: Report from Study
  Country: DE (occurrence: DE)
  Receive Date: 20180606
  Receipt Date: 20180606
  Transmission Date: 20180711
  Serious: Yes (Life-Threatening)
  Sender: FDA-Public Use
  Company Number: DE-TEVA-2018-DE-899916

PATIENT
  Age: 59 Year
  Sex: Female

DRUGS (11)
  1. IDARUBICIN [Suspect]
     Active Substance: IDARUBICIN
     Indication: ACUTE MYELOID LEUKAEMIA
     Dosage: 22.8 MILLIGRAM DAILY;
     Route: 042
     Dates: start: 20141128, end: 20141128
  2. IDARUBICIN [Suspect]
     Active Substance: IDARUBICIN
     Dosage: 21.6 MILLIGRAM DAILY;
     Route: 042
     Dates: start: 20150106, end: 20150106
  3. ATG [Suspect]
     Active Substance: LAPINE T-LYMPHOCYTE IMMUNE GLOBULIN
     Indication: BONE MARROW CONDITIONING REGIMEN
     Dosage: 720 MILLIGRAM DAILY;
     Route: 042
     Dates: start: 20150615
  4. IDARUBICIN [Suspect]
     Active Substance: IDARUBICIN
     Dosage: 21.6 MILLIGRAM DAILY;
     Route: 042
     Dates: start: 20150110, end: 20150110
  5. IDARUBICIN [Suspect]
     Active Substance: IDARUBICIN
     Dosage: 22.8 MILLIGRAM DAILY;
     Route: 042
     Dates: start: 20141130, end: 20141130
  6. IDARUBICIN [Suspect]
     Active Substance: IDARUBICIN
     Dosage: 22.8 MILLIGRAM DAILY;
     Route: 042
     Dates: start: 20141202, end: 20141202
  7. FLUDARABINE [Suspect]
     Active Substance: FLUDARABINE PHOSPHATE
     Indication: BONE MARROW CONDITIONING REGIMEN
     Dosage: 55 MILLIGRAM DAILY;
     Route: 042
     Dates: start: 20150613, end: 20150617
  8. BUSILVEX [Suspect]
     Active Substance: BUSULFAN
     Indication: BONE MARROW CONDITIONING REGIMEN
     Dosage: 232 MILLIGRAM DAILY;
     Route: 042
     Dates: start: 20150615, end: 20150616
  9. IDARUBICIN [Suspect]
     Active Substance: IDARUBICIN
     Dosage: 21.6 MILLIGRAM DAILY;
     Route: 042
     Dates: start: 20150108, end: 20150108
  10. CYTARABINE. [Suspect]
     Active Substance: CYTARABINE
     Indication: ACUTE MYELOID LEUKAEMIA
     Dosage: 190 MILLIGRAM DAILY;
     Route: 042
     Dates: start: 20141128, end: 20141204
  11. CYTARABINE. [Suspect]
     Active Substance: CYTARABINE
     Dosage: 180 MILLIGRAM DAILY;
     Route: 042
     Dates: start: 20150106, end: 20150112

REACTIONS (1)
  - Dedifferentiated liposarcoma [Recovered/Resolved]

NARRATIVE: CASE EVENT DATE: 20170727
